FAERS Safety Report 20351729 (Version 1)
Quarter: 2022Q1

REPORT INFORMATION
  Report Type: Spontaneous
  Country: RU (occurrence: RU)
  Receive Date: 20220119
  Receipt Date: 20220119
  Transmission Date: 20220423
  Serious: Yes (Death)
  Sender: FDA-Public Use
  Company Number: RU-BIOMARINAP-RU-2022-140858

PATIENT
  Age: 24 Year
  Sex: Female

DRUGS (1)
  1. NAGLAZYME [Suspect]
     Active Substance: GALSULFASE
     Indication: Mucopolysaccharidosis VI
     Dosage: UNK
     Route: 042
     Dates: start: 20130101

REACTIONS (2)
  - Cardiac disorder [Fatal]
  - COVID-19 [Unknown]

NARRATIVE: CASE EVENT DATE: 20211201
